FAERS Safety Report 9341642 (Version 1)
Quarter: 2013Q2

REPORT INFORMATION
  Report Type: Spontaneous
  Country: US (occurrence: US)
  Receive Date: 20130611
  Receipt Date: 20130611
  Transmission Date: 20140414
  Serious: No
  Sender: FDA-Public Use
  Company Number: US-PFIZER INC-2013172997

PATIENT
  Sex: Female

DRUGS (1)
  1. DIFLUCAN [Suspect]
     Indication: FUNGAL INFECTION
     Dosage: 100 MG, 1X/DAY X14DAYS
     Dates: start: 201305

REACTIONS (2)
  - Vulvovaginal burning sensation [Unknown]
  - Pain [Unknown]
